FAERS Safety Report 7796778-X (Version None)
Quarter: 2011Q4

REPORT INFORMATION
  Report Type: 
  Country: None (occurrence: None)
  Receive Date: 20111005
  Receipt Date: 20110927
  Transmission Date: 20120403
  Serious: Yes (Life-Threatening, Hospitalization)
  Sender: FDA-Public Use
  Company Number: US-JNJFOC-20110912119

PATIENT
  Age: 19 Month
  Sex: Female

DRUGS (1)
  1. FENTANYL [Suspect]
     Indication: ACCIDENTAL EXPOSURE
     Route: 062

REACTIONS (9)
  - HYPOXIA [None]
  - ACCIDENTAL EXPOSURE [None]
  - OVERDOSE [None]
  - CONVULSION [None]
  - LEUKOENCEPHALOPATHY [None]
  - RESPIRATORY DEPRESSION [None]
  - COMA [None]
  - OFF LABEL USE [None]
  - TOXICITY TO VARIOUS AGENTS [None]
